FAERS Safety Report 6555701-6 (Version None)
Quarter: 2010Q1

REPORT INFORMATION
  Report Type: 
  Country: None (occurrence: None)
  Receive Date: 20100128
  Receipt Date: 20100118
  Transmission Date: 20100710
  Serious: Yes (Hospitalization)
  Sender: FDA-Public Use
  Company Number: FR-PURDUE-GBR-2010-0006056

PATIENT
  Sex: Female

DRUGS (14)
  1. OXYCONTIN [Suspect]
     Indication: ARTHROPATHY
     Dosage: 30 MG, BID
     Route: 048
     Dates: end: 20090711
  2. OXYCONTIN [Suspect]
     Dosage: 5 MG, UNK
     Route: 048
  3. SECTRAL [Concomitant]
     Dosage: 200 MG, DAILY
  4. KARDEGIC                           /00002703/ [Concomitant]
     Dosage: 75 MG, DAILY
  5. INEXIUM                            /01479302/ [Concomitant]
     Dosage: 40 MG, DAILY
  6. ESIDREX                            /00022001/ [Concomitant]
     Dosage: 25 MG, DAILY
  7. LASIX [Concomitant]
     Dosage: 40 MG, BID
  8. TERCIAN                            /00759301/ [Concomitant]
     Dosage: 5 DROP, TID
  9. LAROXYL [Concomitant]
     Dosage: 5 DROP, AM
  10. LAROXYL [Concomitant]
     Dosage: 10 DROP, NOCTE
  11. LYRICA [Concomitant]
     Dosage: 100 MG, BID
  12. EQUANIL [Concomitant]
     Dosage: 250 MG, DAILY
  13. ALPRAZOLAM [Concomitant]
     Dosage: .25 MG, TID
  14. DAFALGAN                           /00020001/ [Concomitant]
     Dosage: 1000 MG, TID

REACTIONS (5)
  - ACUTE RESPIRATORY DISTRESS SYNDROME [None]
  - HYPONATRAEMIA [None]
  - RENAL FAILURE ACUTE [None]
  - SOMNOLENCE [None]
  - URINARY RETENTION [None]
